FAERS Safety Report 9718910 (Version 1)
Quarter: 2013Q4

REPORT INFORMATION
  Report Type: Spontaneous
  Country: FR (occurrence: None)
  Receive Date: 20131126
  Receipt Date: 20131126
  Transmission Date: 20140711
  Serious: Yes (Other)
  Sender: FDA-Public Use
  Company Number: ENTC2013-0442

PATIENT
  Age: 72 Year
  Sex: Male

DRUGS (6)
  1. STALEVO (LEVODOPA, CARBIDOPA, ENTACAPONE) [Suspect]
     Indication: PARKINSON^S DISEASE
     Dosage: 400 MG, (100 MG, 4 IN 1 D) ORAL
     Route: 048
     Dates: start: 2009
  2. REQUIP [Concomitant]
  3. METFORMIN [Concomitant]
  4. VOLTARENE [Concomitant]
  5. SINEMET [Concomitant]
  6. MODOPAR [Concomitant]

REACTIONS (5)
  - Impulse-control disorder [None]
  - Hypersexuality [None]
  - Psychomotor hyperactivity [None]
  - Somnolence [None]
  - Dependence [None]
